FAERS Safety Report 7861436-X (Version None)
Quarter: 2011Q4

REPORT INFORMATION
  Report Type: 
  Country: None (occurrence: None)
  Receive Date: 20111027
  Receipt Date: 20111024
  Transmission Date: 20120403
  Serious: Yes (Other)
  Sender: FDA-Public Use
  Company Number: US-PFIZER INC-2011258581

PATIENT
  Sex: Male
  Weight: 90.703 kg

DRUGS (8)
  1. LYRICA [Suspect]
     Indication: BACK PAIN
     Dosage: 75 MG, 2X/DAY
     Route: 048
     Dates: start: 20111020
  2. LYRICA [Suspect]
     Indication: SPINAL OPERATION
  3. IMITREX [Concomitant]
     Indication: MIGRAINE
     Dosage: UNK, AS NEEDED
     Route: 048
  4. DICLOFENAC [Concomitant]
     Indication: INFLAMMATION
     Dosage: 550 MG, 2X/DAY
  5. SYNTHROID [Concomitant]
     Indication: THYROID DISORDER
     Dosage: 150 UG, DAILY
     Route: 048
  6. LYRICA [Suspect]
     Indication: ARTHRITIS
  7. LEXAPRO [Concomitant]
     Indication: POST-TRAUMATIC STRESS DISORDER
     Dosage: 20 MG, DAILY
     Route: 048
  8. VALPROIC ACID [Concomitant]
     Indication: POST-TRAUMATIC STRESS DISORDER
     Dosage: 2 TABLETS AT NIGHT AND 2 TABLETS IN MORNING
     Route: 048

REACTIONS (6)
  - PARAESTHESIA [None]
  - ACTIVITIES OF DAILY LIVING IMPAIRED [None]
  - ASTHENIA [None]
  - INSOMNIA [None]
  - MOBILITY DECREASED [None]
  - DIZZINESS [None]
